FAERS Safety Report 4490354-2 (Version None)
Quarter: 2004Q3

REPORT INFORMATION
  Report Type: 
  Country: None (occurrence: None)
  Receive Date: 20040921
  Receipt Date: 20031209
  Transmission Date: 20050211
  Serious: Yes (Hospitalization)
  Sender: FDA-Public Use
  Company Number: 163-20785-03120252

PATIENT
  Age: 71 Year
  Sex: Female
  Weight: 76.2043 kg

DRUGS (5)
  1. THALOMID [Suspect]
     Indication: HEPATIC NEOPLASM MALIGNANT
     Dosage: 200 MG, DAILY, ORAL
     Route: 048
     Dates: start: 20030619, end: 20031127
  2. EPIRUBICIN [Suspect]
     Indication: HEPATIC NEOPLASM MALIGNANT
     Dosage: 20 MG/M2, WEEKLY, INTRAVENOUS
     Route: 042
     Dates: start: 20030619, end: 20031120
  3. GLUCOPHAGE [Concomitant]
  4. INSULIN (INSULIN HUMAN) [Concomitant]
  5. CELEBREX [Concomitant]

REACTIONS (2)
  - FALL [None]
  - HIP FRACTURE [None]
